FAERS Safety Report 12139078 (Version 2)
Quarter: 2016Q2

REPORT INFORMATION
  Report Type: Report from Study
  Country: DE (occurrence: DE)
  Receive Date: 20160302
  Receipt Date: 20160415
  Transmission Date: 20160815
  Serious: Yes (Hospitalization)
  Sender: FDA-Public Use
  Company Number: DE-ABBVIE-16P-062-1569156-00

PATIENT
  Age: 79 Year
  Sex: Male

DRUGS (4)
  1. PANTOZOL [Concomitant]
     Active Substance: PANTOPRAZOLE SODIUM
     Indication: PRODUCT USED FOR UNKNOWN INDICATION
     Route: 065
  2. NOVALGIN [Concomitant]
     Active Substance: METAMIZOLE SODIUM
     Indication: PRODUCT USED FOR UNKNOWN INDICATION
     Route: 065
  3. FENTANYL. [Concomitant]
     Active Substance: FENTANYL
     Indication: PRODUCT USED FOR UNKNOWN INDICATION
     Route: 065
  4. DUODOPA [Suspect]
     Active Substance: CARBIDOPA\LEVODOPA
     Indication: PARKINSON^S DISEASE
     Dosage: MD 6.0 ML, CRD 3.5 ML, ED 0.5 ML
     Route: 050
     Dates: start: 20150616

REACTIONS (10)
  - Back pain [Recovering/Resolving]
  - Spinal osteoarthritis [Unknown]
  - Spinal osteoarthritis [Unknown]
  - Spondylitis [Unknown]
  - Spondylolisthesis [Unknown]
  - Staphylococcal infection [Not Recovered/Not Resolved]
  - Osteopenia [Unknown]
  - Interspinous osteoarthritis [Unknown]
  - Osteochondrosis [Unknown]
  - Back pain [Unknown]

NARRATIVE: CASE EVENT DATE: 20160125
